FAERS Safety Report 10965313 (Version 1)
Quarter: 2015Q1

REPORT INFORMATION
  Report Type: Spontaneous
  Country: US (occurrence: None)
  Receive Date: 20150327
  Receipt Date: 20150327
  Transmission Date: 20150721
  Serious: No
  Sender: FDA-Public Use
  Company Number: None

PATIENT
  Age: 46 Year
  Sex: Female
  Weight: 64.86 kg

DRUGS (3)
  1. MIRENA [Suspect]
     Active Substance: LEVONORGESTREL
     Indication: CONTRACEPTION
     Dosage: 5YR LIFE INSERTED INTO UTERUS
     Dates: start: 20140915, end: 20150326
  2. VITAMIN D [Concomitant]
     Active Substance: CHOLECALCIFEROL
  3. VITAMIN C [Concomitant]
     Active Substance: ASCORBIC ACID

REACTIONS (7)
  - Breast tenderness [None]
  - Increased appetite [None]
  - Night sweats [None]
  - Weight increased [None]
  - Abdominal distension [None]
  - Food craving [None]
  - Premenstrual syndrome [None]

NARRATIVE: CASE EVENT DATE: 20140915
